FAERS Safety Report 7280606-5 (Version None)
Quarter: 2011Q1

REPORT INFORMATION
  Report Type: 
  Country: None (occurrence: None)
  Receive Date: 20110126
  Receipt Date: 20110114
  Transmission Date: 20110831
  Serious: Yes (Death)
  Sender: FDA-Public Use
  Company Number: UTC-004377

PATIENT
  Age: 69 Year
  Sex: Female
  Weight: 52.6 kg

DRUGS (3)
  1. REVATIO [Concomitant]
  2. TRACLEER [Concomitant]
  3. REMODULIN [Suspect]
     Indication: COR PULMONALE CHRONIC
     Dosage: 57.6 UG/KG (0.04 UG/KG,1 IN 1 MIN),INTRAVENOUS
     Route: 042
     Dates: start: 20091022

REACTIONS (1)
  - DEATH [None]
